FAERS Safety Report 16370487 (Version 2)
Quarter: 2019Q2

REPORT INFORMATION
  Report Type: Report from Study
  Country: IT (occurrence: IT)
  Receive Date: 20190530
  Receipt Date: 20190618
  Transmission Date: 20190711
  Serious: Yes (Other)
  Sender: FDA-Public Use
  Company Number: IT-ACCORD-129997

PATIENT
  Age: 57 Year
  Sex: Male

DRUGS (5)
  1. RAMIPRIL. [Suspect]
     Active Substance: RAMIPRIL
     Indication: HYPERTENSION
  2. ATENOLOL. [Concomitant]
     Active Substance: ATENOLOL
     Indication: HYPERTENSION
  3. PANTORC [Concomitant]
     Active Substance: PANTOPRAZOLE SODIUM
  4. CARDIOASPIRIN [Interacting]
     Active Substance: ASPIRIN
     Indication: HYPERTENSION
     Route: 048
  5. INDOXEN [Interacting]
     Active Substance: INDOMETHACIN
     Indication: HEADACHE
     Dosage: DOSAGE INTERVAL: TOTAL, STRENGTH: 25 MG
     Route: 048
     Dates: start: 20190214, end: 20190215

REACTIONS (3)
  - Chest pain [Recovering/Resolving]
  - Drug interaction [Unknown]
  - Blood pressure increased [Recovering/Resolving]

NARRATIVE: CASE EVENT DATE: 20190214
